FAERS Safety Report 8990287 (Version 2)
Quarter: 2013Q1

REPORT INFORMATION
  Report Type: Spontaneous
  Country: US (occurrence: US)
  Receive Date: 20121228
  Receipt Date: 20130117
  Transmission Date: 20140127
  Serious: Yes (Other)
  Sender: FDA-Public Use
  Company Number: US-PFIZER INC-2012328520

PATIENT
  Age: 53 Year
  Sex: Female

DRUGS (9)
  1. SUMATRIPTAN SUCCINATE [Suspect]
     Indication: HEADACHE
     Dosage: 6-MG SUBCUTANEOUS INJECTION
     Route: 058
  2. SUMATRIPTAN SUCCINATE [Suspect]
     Dosage: 100-MG TABLET
     Route: 048
  3. SUMATRIPTAN SUCCINATE [Suspect]
     Dosage: 50-100 MG
  4. SUMATRIPTAN SUCCINATE [Suspect]
     Dosage: 50-MG
     Route: 048
     Dates: start: 20071115
  5. ALMOTRIPTAN [Suspect]
     Indication: MIGRAINE
     Dosage: 12.5 MG TABS: HALF TO ONE TAB, UNK
  6. MAGNESIUM [Concomitant]
     Dosage: 250 MG, 1X/DAY
     Route: 048
  7. RIBOFLAVIN [Concomitant]
     Dosage: 100 MG, 1X/DAY
  8. RIBOFLAVIN [Concomitant]
     Dosage: 400 MG, 1X/DAY
  9. NAPROXEN SODIUM [Concomitant]
     Dosage: AS-NEEDED, UNK

REACTIONS (9)
  - Prinzmetal angina [Unknown]
  - Ventricular tachyarrhythmia [Recovered/Resolved]
  - Electrocardiogram change [Unknown]
  - Myocardial ischaemia [Unknown]
  - Electrocardiogram QT prolonged [Recovered/Resolved]
  - Torsade de pointes [Unknown]
  - Arteriospasm coronary [Unknown]
  - Arteriosclerosis [Recovered/Resolved]
  - Chest pain [Unknown]
